FAERS Safety Report 13968968 (Version 2)
Quarter: 2017Q4

REPORT INFORMATION
  Report Type: Spontaneous
  Country: JP (occurrence: JP)
  Receive Date: 20170914
  Receipt Date: 20171113
  Transmission Date: 20180320
  Serious: Yes (Other)
  Sender: FDA-Public Use
  Company Number: JP-OTSUKA-2017_019649

PATIENT
  Age: 86 Year
  Sex: Male

DRUGS (1)
  1. CILOSTAZOL. [Suspect]
     Active Substance: CILOSTAZOL
     Indication: PERIPHERAL ISCHAEMIA
     Dosage: 200 MG, DAILY DOSE
     Route: 048
     Dates: start: 20170226, end: 20170302

REACTIONS (1)
  - Long QT syndrome [Recovering/Resolving]
